FAERS Safety Report 9283037 (Version 1)
Quarter: 2013Q2

REPORT INFORMATION
  Report Type: Spontaneous
  Country: US (occurrence: US)
  Receive Date: 20130510
  Receipt Date: 20130510
  Transmission Date: 20140414
  Serious: No
  Sender: FDA-Public Use
  Company Number: US-GLAXOSMITHKLINE-A0974640A

PATIENT
  Age: 55 Year
  Sex: Female
  Weight: 62.7 kg

DRUGS (8)
  1. TYKERB [Suspect]
     Indication: BREAST CANCER
     Dosage: 1000MG PER DAY
     Route: 048
  2. DILAUDID [Concomitant]
     Route: 048
  3. FENTANYL [Concomitant]
  4. ALEVE [Concomitant]
     Route: 048
  5. IMODIUM [Concomitant]
     Route: 048
  6. ZOFRAN [Concomitant]
     Route: 048
  7. PROCHLORPERAZINE [Concomitant]
     Route: 048
  8. SLEEP AID [Concomitant]
     Route: 048

REACTIONS (6)
  - Fatigue [Unknown]
  - Asthenia [Unknown]
  - Rash [Unknown]
  - Pruritus [Unknown]
  - Diarrhoea [Unknown]
  - Nausea [Unknown]
